FAERS Safety Report 17683708 (Version 2)
Quarter: 2020Q3

REPORT INFORMATION
  Report Type: Report from Study
  Country: FR (occurrence: FR)
  Receive Date: 20200420
  Receipt Date: 20200703
  Transmission Date: 20201102
  Serious: Yes (Other)
  Sender: FDA-Public Use
  Company Number: FR-EMD SERONO-9157122

PATIENT
  Sex: Female

DRUGS (3)
  1. OVITRELLE [Suspect]
     Active Substance: CHORIOGONADOTROPIN ALFA
     Indication: OVULATION INDUCTION
  2. GONAL?F [Suspect]
     Active Substance: FOLLITROPIN
     Dosage: PATIENT INTENTIONALLY INCREASED TO 100 (UNSPECIFIED UNIT)
  3. GONAL?F [Suspect]
     Active Substance: FOLLITROPIN
     Indication: IN VITRO FERTILISATION
     Dosage: 75 (UNSPECIFIED UNIT)

REACTIONS (4)
  - Oestradiol increased [Unknown]
  - Intentional product use issue [Unknown]
  - Adnexa uteri pain [Unknown]
  - Ovarian hyperstimulation syndrome [Unknown]
